FAERS Safety Report 8357435-4 (Version None)
Quarter: 2012Q2

REPORT INFORMATION
  Report Type: 
  Country: None (occurrence: None)
  Receive Date: 20120514
  Receipt Date: 20120503
  Transmission Date: 20120825
  Serious: Yes (Hospitalization)
  Sender: FDA-Public Use
  Company Number: CA-JNJFOC-20120504593

PATIENT
  Sex: Male

DRUGS (4)
  1. PERCOCET [Concomitant]
     Route: 065
  2. TYLENOL W/ CODEINE NO. 3 [Concomitant]
     Route: 065
  3. REMICADE [Suspect]
     Indication: ANKYLOSING SPONDYLITIS
     Route: 042
     Dates: start: 20050421
  4. UNKNOWN MEDICATION [Concomitant]
     Route: 065

REACTIONS (1)
  - SURGERY [None]
